APPROVED DRUG PRODUCT: EXEMESTANE
Active Ingredient: EXEMESTANE
Strength: 25MG
Dosage Form/Route: TABLET;ORAL
Application: A208764 | Product #001
Applicant: DR REDDYS LABORATORIES SA
Approved: Aug 8, 2019 | RLD: No | RS: No | Type: DISCN